FAERS Safety Report 9184383 (Version 1)
Quarter: 2013Q1

REPORT INFORMATION
  Report Type: Spontaneous
  Country: US (occurrence: US)
  Receive Date: 20130322
  Receipt Date: 20130322
  Transmission Date: 20140127
  Serious: Yes (Other)
  Sender: FDA-Public Use
  Company Number: US-JNJFOC-20130307979

PATIENT
  Sex: 0

DRUGS (4)
  1. DOXORUBICIN [Suspect]
     Indication: MEDIASTINUM NEOPLASM
     Dosage: ADMINISTERED EVERY 21 DAYS FOR NO MORE THAN 6 CYCLES
     Route: 042
  2. BELINOSTAT [Suspect]
     Indication: MEDIASTINUM NEOPLASM
     Route: 042
  3. CISPLATIN [Suspect]
     Indication: MEDIASTINUM NEOPLASM
     Dosage: ADMINISTERED EVERY 21 DAYS FOR NO MORE THAN 6 CYCLES
     Route: 042
  4. CYCLOPHOSPHAMIDE [Suspect]
     Indication: MEDIASTINUM NEOPLASM
     Dosage: ADMINISTERED EVERY 21 DAYS FOR NO MORE THAN 6 CYCLES
     Route: 042

REACTIONS (15)
  - Lymphopenia [Unknown]
  - Leukopenia [Unknown]
  - Neutropenia [Unknown]
  - Diarrhoea [Unknown]
  - Nausea [Unknown]
  - Thrombocytopenia [Unknown]
  - Neutropenia [Unknown]
  - Anaemia [Unknown]
  - Hypophosphataemia [Unknown]
  - Hypomagnesaemia [Unknown]
  - Hypokalaemia [Unknown]
  - Aspartate aminotransferase increased [Unknown]
  - Electrocardiogram QT prolonged [Unknown]
  - Embolism [Unknown]
  - Off label use [Unknown]
